FAERS Safety Report 6675493-X (Version None)
Quarter: 2010Q2

REPORT INFORMATION
  Report Type: 
  Country: None (occurrence: None)
  Receive Date: 20100409
  Receipt Date: 20100402
  Transmission Date: 20101027
  Serious: Yes (Hospitalization)
  Sender: FDA-Public Use
  Company Number: B0645095A

PATIENT
  Age: 14 Year
  Sex: Female

DRUGS (5)
  1. ALKERAN [Suspect]
     Indication: BONE MARROW TRANSPLANT
     Route: 042
     Dates: start: 19981101, end: 19981101
  2. BUSULFEX [Suspect]
     Indication: BONE MARROW TRANSPLANT
     Dosage: 6MGML UNKNOWN
     Route: 042
     Dates: start: 19970101, end: 19980101
  3. SAIZEN [Suspect]
     Indication: DRUG USE FOR UNKNOWN INDICATION
     Route: 065
     Dates: start: 20041116, end: 20100204
  4. CYCLOPHOSPHAMIDE [Suspect]
     Indication: BONE MARROW TRANSPLANT
     Route: 042
     Dates: start: 19970101, end: 19980101
  5. THIOTEPA [Suspect]
     Indication: BONE MARROW TRANSPLANT
     Dosage: 15MG UNKNOWN
     Route: 042
     Dates: start: 19981101, end: 19981101

REACTIONS (2)
  - BONE SARCOMA [None]
  - NEOPLASM MALIGNANT [None]
